FAERS Safety Report 11546669 (Version 1)
Quarter: 2015Q3

REPORT INFORMATION
  Report Type: Report from Study
  Country: US (occurrence: US)
  Receive Date: 20150924
  Receipt Date: 20150924
  Transmission Date: 20151125
  Serious: Yes (Other)
  Sender: FDA-Public Use
  Company Number: US-JNJFOC-20150913584

PATIENT

DRUGS (2)
  1. STELARA [Suspect]
     Active Substance: USTEKINUMAB
     Indication: PSORIASIS
     Dosage: MOTHER DOSING
     Route: 064
     Dates: start: 201303, end: 20150226
  2. STELARA [Suspect]
     Active Substance: USTEKINUMAB
     Indication: PSORIASIS
     Dosage: MOTHER DOSING
     Route: 064
     Dates: start: 20150916

REACTIONS (2)
  - Foetal exposure during pregnancy [Recovered/Resolved]
  - Premature baby [Not Recovered/Not Resolved]

NARRATIVE: CASE EVENT DATE: 2014
